FAERS Safety Report 8099545-5 (Version None)
Quarter: 2012Q1

REPORT INFORMATION
  Report Type: 
  Country: None (occurrence: None)
  Receive Date: 20120129
  Receipt Date: 20110926
  Transmission Date: 20120608
  Serious: No
  Sender: FDA-Public Use
  Company Number: US-ABBOTT-11P-163-0858250-00

PATIENT
  Age: 51 Year
  Sex: Male

DRUGS (5)
  1. IMURAN [Concomitant]
     Indication: CROHN'S DISEASE
     Dosage: DAILY
  2. LORTAB [Concomitant]
     Indication: PAIN
     Dosage: AS REQUIRED
  3. TRAMADOL HCL [Concomitant]
     Indication: RESTLESS LEGS SYNDROME
  4. HUMIRA [Suspect]
     Indication: CROHN'S DISEASE
     Dates: start: 20110801
  5. PRILOSEC OTC [Concomitant]
     Indication: GASTROOESOPHAGEAL REFLUX DISEASE
     Dosage: DAILY

REACTIONS (4)
  - PRURITUS [None]
  - TREMOR [None]
  - FATIGUE [None]
  - RASH PAPULAR [None]
